FAERS Safety Report 8528604-5 (Version None)
Quarter: 2012Q3

REPORT INFORMATION
  Report Type: 
  Country: None (occurrence: None)
  Receive Date: 20120723
  Receipt Date: 20120712
  Transmission Date: 20120928
  Serious: Yes (Hospitalization)
  Sender: FDA-Public Use
  Company Number: US-BIOGENIDEC-2012BI026041

PATIENT
  Age: 51 Year
  Sex: Female

DRUGS (4)
  1. AVONEX [Suspect]
     Indication: MULTIPLE SCLEROSIS
     Route: 030
  2. AVONEX [Suspect]
     Route: 030
     Dates: start: 20010601, end: 20030801
  3. AVONEX [Suspect]
     Route: 030
     Dates: start: 20050101, end: 20120601
  4. AVONEX [Suspect]
     Route: 030
     Dates: start: 20030801, end: 20050101

REACTIONS (2)
  - LYMPHADENOPATHY [None]
  - PULMONARY EMBOLISM [None]
